FAERS Safety Report 16389474 (Version 2)
Quarter: 2019Q4

REPORT INFORMATION
  Report Type: Spontaneous
  Country: GB (occurrence: SE)
  Receive Date: 20190604
  Receipt Date: 20191227
  Transmission Date: 20200122
  Serious: Yes (Other)
  Sender: FDA-Public Use
  Company Number: GB-COOPERSURGICAL, INC.-SE-2019CPS001669

PATIENT
  Age: 53 Year
  Sex: Female

DRUGS (1)
  1. PARAGARD T 380A [Suspect]
     Active Substance: COPPER
     Indication: PRODUCT USED FOR UNKNOWN INDICATION
     Dosage: UNK
     Route: 015
     Dates: start: 2005

REACTIONS (4)
  - Foreign body in reproductive tract [Unknown]
  - Device breakage [Not Recovered/Not Resolved]
  - Complication of device removal [Unknown]
  - Device use issue [Unknown]

NARRATIVE: CASE EVENT DATE: 20190408
